FAERS Safety Report 7088796-4 (Version None)
Quarter: 2010Q4

REPORT INFORMATION
  Report Type: 
  Country: None (occurrence: None)
  Receive Date: 20101108
  Receipt Date: 20101026
  Transmission Date: 20110411
  Serious: Yes (Hospitalization)
  Sender: FDA-Public Use
  Company Number: PHHY2010FR73997

PATIENT
  Sex: Female

DRUGS (4)
  1. LEPONEX [Suspect]
     Indication: MENTAL DISORDER
     Dosage: 400 MG/DAY
     Route: 048
     Dates: start: 20090901
  2. LEPONEX [Suspect]
     Dosage: UNK
  3. ANAFRANIL [Suspect]
     Indication: DEPRESSION
     Dosage: 150 MG/DAY
     Dates: start: 20090301, end: 20100901
  4. TRIATEC [Concomitant]

REACTIONS (1)
  - CONGESTIVE CARDIOMYOPATHY [None]
